FAERS Safety Report 14147680 (Version 1)
Quarter: 2017Q4

REPORT INFORMATION
  Report Type: Spontaneous
  Country: US (occurrence: US)
  Receive Date: 20171101
  Receipt Date: 20171101
  Transmission Date: 20180321
  Serious: Yes (Hospitalization, Other)
  Sender: FDA-Public Use
  Company Number: US-TEVA-819463ACC

PATIENT
  Sex: Female

DRUGS (1)
  1. PARAGARD T 380A [Suspect]
     Active Substance: COPPER
     Indication: CONTRACEPTION
     Dates: start: 201506

REACTIONS (8)
  - Device dislocation [Unknown]
  - Device breakage [Unknown]
  - Uterine perforation [Unknown]
  - Pregnancy on contraceptive [Unknown]
  - Muscle spasms [Unknown]
  - Maternal exposure during pregnancy [Unknown]
  - Uterine abscess [Unknown]
  - Abdominal pain [Unknown]
